FAERS Safety Report 8395046-5 (Version None)
Quarter: 2012Q2

REPORT INFORMATION
  Report Type: 
  Country: None (occurrence: None)
  Receive Date: 20120524
  Receipt Date: 20120511
  Transmission Date: 20120825
  Serious: Yes (Death, Hospitalization)
  Sender: FDA-Public Use
  Company Number: UTC-017683

PATIENT
  Age: 76 Year
  Sex: Female
  Weight: 36.4 kg

DRUGS (7)
  1. REMODULIN [Suspect]
     Indication: PULMONARY ARTERIAL HYPERTENSION
     Dosage: 66.24 UG/KG (0.046 UG/KG, 1 IN 1 MIN), INTRAVENOUS 60000 NG/ML, INTRAVENOUS
     Route: 042
     Dates: start: 20090618
  2. REMODULIN [Suspect]
     Indication: COR PULMONALE CHRONIC
     Dosage: 66.24 UG/KG (0.046 UG/KG, 1 IN 1 MIN), INTRAVENOUS 60000 NG/ML, INTRAVENOUS
     Route: 042
     Dates: start: 20090618
  3. REMODULIN [Suspect]
     Indication: PULMONARY ARTERIAL HYPERTENSION
     Dosage: 66.24 UG/KG (0.046 UG/KG, 1 IN 1 MIN), INTRAVENOUS 60000 NG/ML, INTRAVENOUS
     Route: 042
     Dates: start: 20090212
  4. REMODULIN [Suspect]
     Indication: COR PULMONALE CHRONIC
     Dosage: 66.24 UG/KG (0.046 UG/KG, 1 IN 1 MIN), INTRAVENOUS 60000 NG/ML, INTRAVENOUS
     Route: 042
     Dates: start: 20090212
  5. DIURETICS (DIURETICS) [Concomitant]
  6. REMODULIN [Suspect]
  7. LETAIRIS [Concomitant]

REACTIONS (1)
  - HOSPITALISATION [None]
